FAERS Safety Report 18644875 (Version 2)
Quarter: 2021Q1

REPORT INFORMATION
  Report Type: Spontaneous
  Country: CZ (occurrence: CZ)
  Receive Date: 20201221
  Receipt Date: 20210208
  Transmission Date: 20210419
  Serious: Yes (Hospitalization, Other)
  Sender: FDA-Public Use
  Company Number: CZ-MYLANLABS-2020M1103188

PATIENT
  Age: 86 Year
  Sex: Female

DRUGS (30)
  1. METOPROLOL. [Concomitant]
     Active Substance: METOPROLOL
     Dosage: 25 MILLIGRAM, QD (1?0?0)
     Route: 048
  2. PARACETAMOL [Suspect]
     Active Substance: ACETAMINOPHEN
     Indication: PRODUCT USED FOR UNKNOWN INDICATION
     Dosage: 750 MILLIGRAM, QD (1.5 TABLETS 3?4 TIMES A DAY)
     Route: 048
     Dates: start: 2015
  3. BETALOC ZOK [Interacting]
     Active Substance: METOPROLOL SUCCINATE
     Indication: PRODUCT USED FOR UNKNOWN INDICATION
     Dosage: 25 MILLIGRAM, QD
     Route: 065
  4. FENTANYL. [Suspect]
     Active Substance: FENTANYL
     Indication: PRODUCT USED FOR UNKNOWN INDICATION
     Dosage: 25 MICROGRAM, QH (25 UG/H EVERY 72 HODIN))
     Route: 062
     Dates: start: 2015
  5. DUROGESIC [Interacting]
     Active Substance: FENTANYL
     Indication: PAIN
     Dosage: 25 MICROGRAM, FOR 72 HOURS
     Route: 062
  6. MELOXICAM. [Suspect]
     Active Substance: MELOXICAM
     Indication: PRODUCT USED FOR UNKNOWN INDICATION
     Dosage: 15 MILLIGRAM, QW (1 TBL IF PAIN, APP. 3 TIMES A WEEK)
     Route: 048
     Dates: start: 2015
  7. ACIDUM FOLICUM [Suspect]
     Active Substance: FOLIC ACID
     Indication: PRODUCT USED FOR UNKNOWN INDICATION
     Dosage: 1 DOSAGE FORM, QW (1?0?0 ON MONDAY)
     Route: 048
  8. METAMIZOLE [Suspect]
     Active Substance: METAMIZOLE
     Indication: PRODUCT USED FOR UNKNOWN INDICATION
     Dosage: 500 MILLIGRAM, QD (1?0?1)
     Route: 048
     Dates: start: 2015
  9. PREDNISON LECIVA [Concomitant]
     Active Substance: PREDNISONE
     Dosage: 5 MILLIGRAM, QD (1?0?0)
     Route: 048
  10. PANADOL [Interacting]
     Active Substance: ACETAMINOPHEN
     Indication: PRODUCT USED FOR UNKNOWN INDICATION
     Dosage: 1.5 DOSAGE FORM
     Route: 065
  11. CARDILAN                           /00152401/ [Interacting]
     Active Substance: NICOFURANOSE
     Indication: PRODUCT USED FOR UNKNOWN INDICATION
     Dosage: UNK
     Route: 065
  12. ACIDUM FOLICUM [Interacting]
     Active Substance: FOLIC ACID
     Indication: PRODUCT USED FOR UNKNOWN INDICATION
     Dosage: 1 UNK, QW
     Route: 065
  13. AMIODARONE [Interacting]
     Active Substance: AMIODARONE
     Indication: PRODUCT USED FOR UNKNOWN INDICATION
     Dosage: 200 MILLIGRAM, QD (1?0?0)
     Route: 048
  14. PREDNISONE. [Interacting]
     Active Substance: PREDNISONE
     Indication: PRODUCT USED FOR UNKNOWN INDICATION
     Dosage: 5 MILLIGRAM, QD
     Route: 065
  15. AGEN [Interacting]
     Active Substance: AMLODIPINE BESYLATE
     Indication: PRODUCT USED FOR UNKNOWN INDICATION
     Dosage: 5 MILLIGRAM, QD (1?0?0)
     Route: 048
  16. SODIUM PICOSULFATE [Suspect]
     Active Substance: SODIUM PICOSULFATE
     Indication: PRODUCT USED FOR UNKNOWN INDICATION
     Dosage: UNK (10?20 GTT IN THE EVENING), DROPS
     Route: 048
  17. LEVOTHYROXINE. [Concomitant]
     Active Substance: LEVOTHYROXINE
     Dosage: 100 MICROGRAM, QW (1?0?0 EXCEPT SUNDAY)
     Route: 048
  18. TEZEO [Interacting]
     Active Substance: TELMISARTAN
     Indication: PRODUCT USED FOR UNKNOWN INDICATION
     Dosage: 1 DOSAGE FORM, QD
     Route: 065
  19. GUTTALAX [SODIUM PICOSULFATE] [Interacting]
     Active Substance: SODIUM PICOSULFATE
     Indication: CONSTIPATION
     Dosage: 10?20 GTT IN THE EVENING
     Route: 065
  20. ROSUCARD [Interacting]
     Active Substance: ROSUVASTATIN CALCIUM
     Indication: PRODUCT USED FOR UNKNOWN INDICATION
     Dosage: 20 MILLIGRAM, QD (0?0?1)
     Route: 048
  21. APIXABAN [Concomitant]
     Active Substance: APIXABAN
     Dosage: 5 MILLIGRAM, QD (1?0?1)
     Route: 048
  22. ORAMELLOX [Interacting]
     Active Substance: MELOXICAM
     Indication: PAIN
     Dosage: 15 MILLIGRAM, Q3W
     Route: 065
  23. ELIQUIS [Interacting]
     Active Substance: APIXABAN
     Indication: PRODUCT USED FOR UNKNOWN INDICATION
     Dosage: 5 MILLIGRAM, BID
     Route: 065
  24. PANTOPRAZOLE [Suspect]
     Active Substance: PANTOPRAZOLE
     Indication: PRODUCT USED FOR UNKNOWN INDICATION
     Dosage: 20 MILLIGRAM, QD (1?0?0)
     Route: 048
  25. METHOTREXATE (METHOTREXATE SODIUM) [Interacting]
     Active Substance: METHOTREXATE SODIUM
     Indication: RHEUMATOID ARTHRITIS
     Dosage: 10 MILLIGRAM, QW (1?0?0 ON SUNDAY)
     Route: 048
  26. LEVOTHYROXINE. [Concomitant]
     Active Substance: LEVOTHYROXINE
     Dosage: 100 MICROGRAM, QD (1?0?0)
     Route: 048
  27. NOVALGIN (METAMIZOLE SODIUM) [Interacting]
     Active Substance: METAMIZOLE SODIUM
     Indication: PRODUCT USED FOR UNKNOWN INDICATION
     Dosage: 500 MILLIGRAM, BID
     Route: 065
  28. EUTHYROX [Interacting]
     Active Substance: LEVOTHYROXINE SODIUM
     Indication: PRODUCT USED FOR UNKNOWN INDICATION
     Dosage: 100 MICROGRAM, QD
     Route: 065
  29. CALCICHEW D3 [Interacting]
     Active Substance: CALCIUM\CHOLECALCIFEROL
     Indication: PRODUCT USED FOR UNKNOWN INDICATION
     Dosage: UNK UNK, QD
     Route: 065
  30. CHONDROITIN SULPHATE [Suspect]
     Active Substance: SODIUM CHONDROITIN SULFATE
     Indication: PRODUCT USED FOR UNKNOWN INDICATION
     Dosage: 800 MILLIGRAM, QD (0?0?1)
     Route: 048

REACTIONS (24)
  - Head discomfort [Recovered/Resolved]
  - Anxiety [Recovered/Resolved]
  - Discomfort [Recovered/Resolved]
  - Confusional state [Recovered/Resolved]
  - Atrial fibrillation [Recovered/Resolved]
  - Immobile [Recovered/Resolved]
  - Condition aggravated [Recovered/Resolved]
  - Urinary retention [Recovered/Resolved]
  - Drug interaction [Recovered/Resolved]
  - Vertigo [Recovered/Resolved]
  - Apathy [Recovered/Resolved]
  - Encephalopathy [Recovering/Resolving]
  - Cerebral atrophy [Recovered/Resolved]
  - Delirium [Recovering/Resolving]
  - Multiple drug therapy [Recovered/Resolved]
  - Oxygen saturation decreased [Recovered/Resolved]
  - Cognitive disorder [Recovered/Resolved]
  - General physical health deterioration [Recovering/Resolving]
  - Medication error [Recovered/Resolved]
  - Hepatic enzyme increased [Recovered/Resolved]
  - Hyponatraemia [Recovered/Resolved]
  - Hypertension [Recovered/Resolved]
  - Nausea [Recovered/Resolved]
  - Hypokalaemia [Recovered/Resolved]

NARRATIVE: CASE EVENT DATE: 2018
